FAERS Safety Report 10051744 (Version 3)
Quarter: 2014Q2

REPORT INFORMATION
  Report Type: Spontaneous
  Country: CA (occurrence: CA)
  Receive Date: 20140401
  Receipt Date: 20140603
  Transmission Date: 20141212
  Serious: Yes (Other)
  Sender: FDA-Public Use
  Company Number: CA-AMGEN-KDL348586

PATIENT
  Age: 53 Year
  Sex: Female
  Weight: 83.9 kg

DRUGS (7)
  1. ENBREL [Suspect]
     Indication: RHEUMATOID ARTHRITIS
     Dosage: 50 MG, 1 X WEEK
     Route: 065
     Dates: start: 20060327
  2. ATORVASTATIN [Concomitant]
     Dosage: 10 MG, 1 TAB AT BED TIME
  3. RAMIPRIL [Concomitant]
     Dosage: 2.5 MG, 1 TABS AT BEDTIME
  4. METHOTREXATE [Concomitant]
     Dosage: 2.5 X 5 TABS ONCE WEEKLY
  5. HYDROCHLOROTHIAZIDE [Concomitant]
     Dosage: 25 MG, 1 TAB DAILY
  6. MELOXICAM [Concomitant]
     Dosage: 7.5MG X 2 DAILY
  7. ACTONEL [Concomitant]
     Dosage: 150 MG, ONCE MONTHLY

REACTIONS (12)
  - Bladder operation [Unknown]
  - Urinary tract infection [Recovering/Resolving]
  - Device failure [Unknown]
  - Pharyngitis [Not Recovered/Not Resolved]
  - Sinusitis [Not Recovered/Not Resolved]
  - Nasopharyngitis [Not Recovered/Not Resolved]
  - Pain in extremity [Not Recovered/Not Resolved]
  - Asthenia [Unknown]
  - Arthropathy [Unknown]
  - Peripheral swelling [Recovered/Resolved]
  - Nodule [Unknown]
  - Pain [Unknown]
